FAERS Safety Report 4501269-5 (Version None)
Quarter: 2004Q4

REPORT INFORMATION
  Report Type: 
  Country: None (occurrence: None)
  Receive Date: 20041110
  Receipt Date: 20041026
  Transmission Date: 20050328
  Serious: Yes (Hospitalization)
  Sender: FDA-Public Use
  Company Number: 2004241483JP

PATIENT
  Age: 75 Year
  Sex: Female
  Weight: 44.9 kg

DRUGS (7)
  1. SULFASALAZINE [Suspect]
     Indication: COLITIS
     Dosage: 500 MG, QID, ORAL
     Route: 048
     Dates: start: 20040906, end: 20041020
  2. BLOPRESS (CANDESARTAN CILEXTIL) [Concomitant]
  3. LAC B (LACTOBACILLUS BIFIDUS, LYOPHILIZED) [Concomitant]
  4. MAGNESIUM OXIDE [Concomitant]
  5. PURSENNID (SENNA LEAF) [Concomitant]
  6. NOVORAPID (INSULIN) [Concomitant]
  7. NOVOLIN R [Concomitant]

REACTIONS (8)
  - ERYTHEMA [None]
  - INFECTIOUS MONONUCLEOSIS [None]
  - LIP EROSION [None]
  - LYMPHOCYTE MORPHOLOGY ABNORMAL [None]
  - OEDEMA [None]
  - PRURITUS GENERALISED [None]
  - RASH [None]
  - WHITE BLOOD CELL COUNT DECREASED [None]
